FAERS Safety Report 11772816 (Version 1)
Quarter: 2015Q4

REPORT INFORMATION
  Report Type: Spontaneous
  Country: US (occurrence: US)
  Receive Date: 20151124
  Receipt Date: 20151124
  Transmission Date: 20160304
  Serious: Yes (Hospitalization)
  Sender: FDA-Public Use
  Company Number: US-MALLINCKRODT-T201504928

PATIENT
  Age: 40 Year
  Sex: Male

DRUGS (3)
  1. TIZANIDINE. [Concomitant]
     Active Substance: TIZANIDINE
     Dosage: 2 MG AT HS
  2. GABLOFEN [Suspect]
     Active Substance: BACLOFEN
     Indication: MUSCLE SPASTICITY
     Dosage: 310.3 MCG/DAY
     Route: 037
     Dates: start: 20150707, end: 20150926
  3. GABLOFEN [Suspect]
     Active Substance: BACLOFEN
     Dosage: UNK
     Route: 037
     Dates: end: 20150707

REACTIONS (1)
  - Implant site infection [Recovered/Resolved]

NARRATIVE: CASE EVENT DATE: 201509
